FAERS Safety Report 24845314 (Version 1)
Quarter: 2025Q1

REPORT INFORMATION
  Report Type: Spontaneous
  Country: US (occurrence: None)
  Receive Date: 20250114
  Receipt Date: 20250114
  Transmission Date: 20250409
  Serious: No
  Sender: FDA-CTU
  Company Number: None

PATIENT
  Age: 68 Year
  Sex: Female
  Weight: 65.25 kg

DRUGS (3)
  1. METOPROLOL [Suspect]
     Active Substance: METOPROLOL
     Indication: Palpitations
     Route: 048
     Dates: start: 20240227, end: 20240602
  2. LOSARTAN [Concomitant]
     Active Substance: LOSARTAN
  3. CELEBREX [Concomitant]
     Active Substance: CELECOXIB

REACTIONS (6)
  - Therapeutic product effect incomplete [None]
  - Somnolence [None]
  - Therapy change [None]
  - Depression [None]
  - Nightmare [None]
  - Therapy change [None]

NARRATIVE: CASE EVENT DATE: 20240601
